FAERS Safety Report 10024490 (Version 1)
Quarter: 2014Q1

REPORT INFORMATION
  Report Type: Spontaneous
  Country: US (occurrence: None)
  Receive Date: 20140319
  Receipt Date: 20140319
  Transmission Date: 20141002
  Serious: Yes (Death)
  Sender: FDA-Public Use
  Company Number: None

PATIENT
  Age: 58 Year
  Sex: Male
  Weight: 78.1 kg

DRUGS (11)
  1. XARELTO [Suspect]
     Indication: THROMBOSIS PROPHYLAXIS
     Dosage: 1 TAB
     Route: 048
     Dates: start: 20131018, end: 20140313
  2. XARELTO [Suspect]
     Indication: ATRIAL FIBRILLATION
     Dosage: 1 TAB
     Route: 048
     Dates: start: 20131018, end: 20140313
  3. VITAMIN D3 [Concomitant]
  4. TRAVATAN [Concomitant]
  5. METOPROLOL [Concomitant]
  6. LATANOPROST [Concomitant]
  7. LASIX [Concomitant]
  8. IMIPRAMINE [Concomitant]
  9. IMDUR [Concomitant]
  10. HYDRALAZINE [Concomitant]
  11. FISH OIL [Concomitant]

REACTIONS (5)
  - Headache [None]
  - Dizziness [None]
  - Lethargy [None]
  - Unresponsive to stimuli [None]
  - Cerebral haemorrhage [None]
